FAERS Safety Report 17414603 (Version 1)
Quarter: 2020Q1

REPORT INFORMATION
  Report Type: Spontaneous
  Country: IT (occurrence: IT)
  Receive Date: 20200213
  Receipt Date: 20200213
  Transmission Date: 20200409
  Serious: Yes (Hospitalization)
  Sender: FDA-Public Use
  Company Number: IT-MYLANLABS-2020M1015554

PATIENT
  Age: 60 Year
  Sex: Male

DRUGS (9)
  1. MITOXANTRONE [Suspect]
     Active Substance: MITOXANTRONE HYDROCHLORIDE
     Indication: ACUTE MYELOID LEUKAEMIA RECURRENT
     Dosage: 7 MG/M2, UNK
     Route: 065
     Dates: start: 2015
  2. BUSULFAN. [Concomitant]
     Active Substance: BUSULFAN
     Indication: BONE MARROW CONDITIONING REGIMEN
     Dosage: UNK
     Route: 065
  3. CYTARABINE. [Suspect]
     Active Substance: CYTARABINE
     Indication: PRODUCT USED FOR UNKNOWN INDICATION
     Dosage: 2000 MG, QD
     Route: 065
     Dates: start: 2015
  4. CYTARABINE. [Suspect]
     Active Substance: CYTARABINE
     Dosage: 2000 MG, 1X/DAY
     Route: 065
     Dates: start: 201805
  5. FILGRASTIM [Suspect]
     Active Substance: FILGRASTIM
     Indication: ACUTE MYELOID LEUKAEMIA RECURRENT
     Dosage: FROM DAY -1
     Route: 065
  6. IDARUBICIN [Suspect]
     Active Substance: IDARUBICIN
     Indication: ACUTE MYELOID LEUKAEMIA RECURRENT
     Dosage: 15 MG, QD
     Route: 065
     Dates: start: 201805
  7. FLUDARABINE [Suspect]
     Active Substance: FLUDARABINE PHOSPHATE
     Indication: ACUTE MYELOID LEUKAEMIA RECURRENT
     Dosage: 40 MILLIGRAM, QD
     Route: 065
     Dates: start: 201805
  8. FLUDARABINE [Suspect]
     Active Substance: FLUDARABINE PHOSPHATE
     Dosage: 30 MG, QD, ALSO TAKEN 40 MG FROM MAY-2018
     Route: 065
     Dates: start: 2015
  9. CYTARABINE. [Suspect]
     Active Substance: CYTARABINE
     Dosage: 2000 MG, QD, ALSO TAKEN 2000 MG FROM MAY-2018(2000 MG, 1X/DAY), AND FROM 2015
     Route: 065
     Dates: start: 2015

REACTIONS (5)
  - Cytopenia [Unknown]
  - Neoplasm recurrence [Unknown]
  - Bone marrow failure [Unknown]
  - Pyrexia [Unknown]
  - Pancytopenia [Unknown]

NARRATIVE: CASE EVENT DATE: 201804
